FAERS Safety Report 5191237-5 (Version None)
Quarter: 2006Q4

REPORT INFORMATION
  Report Type: 
  Country: None (occurrence: None)
  Receive Date: 20061220
  Receipt Date: 20061220
  Transmission Date: 20070319
  Serious: Yes (Hospitalization)
  Sender: FDA-Public Use
  Company Number: None

PATIENT
  Age: 72 Year
  Sex: Male
  Weight: 83.4619 kg

DRUGS (2)
  1. FLEXERIL [Suspect]
     Indication: MYALGIA
     Dosage: UNKNOWN PO
     Route: 048
     Dates: start: 20061103, end: 20061106
  2. CELEBREX [Suspect]
     Indication: MYALGIA
     Dosage: UNKNOWN PO
     Route: 048
     Dates: start: 20061103, end: 20061106

REACTIONS (5)
  - ATRIAL FIBRILLATION [None]
  - BLOOD BILIRUBIN INCREASED [None]
  - JAUNDICE [None]
  - RENAL FAILURE [None]
  - UROBILIN URINE [None]
